FAERS Safety Report 18714172 (Version 1)
Quarter: 2021Q1

REPORT INFORMATION
  Report Type: Spontaneous
  Country: FR (occurrence: FR)
  Receive Date: 20210108
  Receipt Date: 20210108
  Transmission Date: 20210419
  Serious: Yes (Other)
  Sender: FDA-Public Use
  Company Number: FR-BEH-2021126801

PATIENT
  Age: 21 Year
  Sex: Female

DRUGS (5)
  1. LUTERAN [Concomitant]
     Active Substance: CHLORMADINONE ACETATE
     Dosage: UNK
  2. C1?ESTERASE INHIBITOR (INN) [Suspect]
     Active Substance: HUMAN C1-ESTERASE INHIBITOR
     Indication: PROPHYLAXIS
     Dosage: LONG TER PROPHYALAXIS,1 INJ/WEEK
     Route: 042
     Dates: start: 20200130, end: 20201015
  3. C1?ESTERASE INHIBITOR (INN) [Suspect]
     Active Substance: HUMAN C1-ESTERASE INHIBITOR
     Indication: HEREDITARY ANGIOEDEMA
  4. FIRAZYR [Suspect]
     Active Substance: ICATIBANT ACETATE
     Indication: HEREDITARY ANGIOEDEMA
     Dosage: UNK, AS REQUIRED
     Route: 058
     Dates: start: 2018
  5. LUTENYL [Concomitant]
     Active Substance: NOMEGESTROL ACETATE
     Dosage: UNK

REACTIONS (8)
  - Poor venous access [Recovered/Resolved]
  - Pharyngeal oedema [Unknown]
  - Off label use [Unknown]
  - Paraesthesia [Recovered/Resolved]
  - Injection site paraesthesia [Recovered/Resolved]
  - Injection site pain [Recovered/Resolved]
  - No adverse event [Unknown]
  - Drug ineffective [Recovered/Resolved]

NARRATIVE: CASE EVENT DATE: 20200630
